FAERS Safety Report 4278617-7 (Version None)
Quarter: 2004Q1

REPORT INFORMATION
  Report Type: 
  Country: None (occurrence: None)
  Receive Date: 20040122
  Receipt Date: 20040122
  Transmission Date: 20041129
  Serious: Yes (Life-Threatening, Hospitalization)
  Sender: FDA-Public Use
  Company Number: None

PATIENT
  Age: 77 Year
  Sex: Female
  Weight: 58.514 kg

DRUGS (11)
  1. WARFARIN SODIUM [Suspect]
     Indication: ATRIAL FIBRILLATION
     Dosage: 5MG T/TH/SAT 2.5 MG M/W/F
  2. DIGOXIN [Concomitant]
  3. LOPID [Concomitant]
  4. ASPIRIN [Concomitant]
  5. VERAPAMIL [Concomitant]
  6. MAGNESIUM [Concomitant]
  7. GINKO BILOBA [Concomitant]
  8. GLUCOPHAGE [Concomitant]
  9. ACTONEL [Concomitant]
  10. VIT B6 [Concomitant]
  11. PREVACID [Concomitant]

REACTIONS (2)
  - GASTROINTESTINAL HAEMORRHAGE [None]
  - INTERNATIONAL NORMALISED RATIO INCREASED [None]
